FAERS Safety Report 12913747 (Version 1)
Quarter: 2016Q4

REPORT INFORMATION
  Report Type: Spontaneous
  Country: US (occurrence: US)
  Receive Date: 20161106
  Receipt Date: 20161106
  Transmission Date: 20170207
  Serious: Yes (Other)
  Sender: FDA-Public Use
  Company Number: US-ASTRAZENECA-2016SF14517

PATIENT
  Sex: Female

DRUGS (7)
  1. IBRANCE [Suspect]
     Active Substance: PALBOCICLIB
     Indication: BREAST CANCER FEMALE
     Dosage: 125 MG DAILY (THREE WEEKS ON AND ONE WEEK OFF)
     Route: 048
     Dates: start: 201510, end: 201601
  2. IBRANCE [Suspect]
     Active Substance: PALBOCICLIB
     Indication: BREAST CANCER FEMALE
     Route: 048
  3. XGEVA [Concomitant]
     Active Substance: DENOSUMAB
     Indication: BREAST CANCER FEMALE
     Dosage: 120 MG MONTHLY
     Route: 058
     Dates: start: 201609
  4. XGEVA [Concomitant]
     Active Substance: DENOSUMAB
     Indication: BONE LESION
     Dosage: 120 MG MONTHLY
     Route: 058
     Dates: start: 201609
  5. FENTANYL. [Concomitant]
     Active Substance: FENTANYL
     Indication: PAIN
     Dosage: 25 UG PLUS 12 UG EVERY 72 HOURS
     Route: 062
     Dates: start: 201606
  6. ANASTRAZOLE [Suspect]
     Active Substance: ANASTROZOLE
     Indication: BREAST CANCER FEMALE
     Route: 048
  7. ATIVAN [Concomitant]
     Active Substance: LORAZEPAM
     Indication: ANXIETY
     Dosage: 1 MG DAILY AS REQUIRED
     Dates: start: 201606

REACTIONS (18)
  - Malignant neoplasm progression [Unknown]
  - Depression [Not Recovered/Not Resolved]
  - Drug hypersensitivity [Unknown]
  - Drug dose omission [Recovered/Resolved]
  - Dyspnoea [Not Recovered/Not Resolved]
  - Neutropenia [Unknown]
  - Vulvovaginal mycotic infection [Unknown]
  - Hyperaesthesia [Unknown]
  - Osteonecrosis of jaw [Unknown]
  - Atelectasis [Unknown]
  - Bronchitis [Unknown]
  - Hot flush [Unknown]
  - Rash [Unknown]
  - Acne [Unknown]
  - Fatigue [Not Recovered/Not Resolved]
  - Breast cancer [None]
  - Productive cough [Not Recovered/Not Resolved]
  - Hyponatraemia [Unknown]

NARRATIVE: CASE EVENT DATE: 2016
